FAERS Safety Report 24039903 (Version 2)
Quarter: 2024Q3

REPORT INFORMATION
  Report Type: Spontaneous
  Country: JP (occurrence: JP)
  Receive Date: 20240702
  Receipt Date: 20240902
  Transmission Date: 20241016
  Serious: Yes (Hospitalization)
  Sender: SUNOVION
  Company Number: JP-SMPA-2024SMP009702

PATIENT

DRUGS (1)
  1. LATUDA [Suspect]
     Active Substance: LURASIDONE HYDROCHLORIDE
     Indication: Schizophrenia
     Dosage: 80 MG, QD
     Route: 048

REACTIONS (5)
  - Caesarean section [Unknown]
  - Drug level decreased [Unknown]
  - Psychiatric symptom [Unknown]
  - Maternal exposure during pregnancy [Unknown]
  - Normal newborn [Unknown]
